FAERS Safety Report 4893376-2 (Version None)
Quarter: 2006Q1

REPORT INFORMATION
  Report Type: 
  Country: None (occurrence: None)
  Receive Date: 20060125
  Receipt Date: 20060125
  Transmission Date: 20060701
  Serious: Yes (Life-Threatening, Hospitalization, Disabling)
  Sender: FDA-Public Use
  Company Number: None

PATIENT
  Sex: Female
  Weight: 54.4316 kg

DRUGS (16)
  1. PLAQUENIL [Suspect]
     Indication: SYSTEMIC LUPUS ERYTHEMATOSUS
     Dosage: 200 MG 2 TABS/DAY ORAL
     Route: 048
     Dates: start: 19980901, end: 20040201
  2. .... [Concomitant]
  3. ... [Concomitant]
  4. ... [Concomitant]
  5. ... [Concomitant]
  6. ... [Concomitant]
  7. ... [Concomitant]
  8. ... [Concomitant]
  9. ... [Concomitant]
  10. ... [Concomitant]
  11. ... [Concomitant]
  12. ... [Concomitant]
  13. ... [Concomitant]
  14. ... [Concomitant]
  15. .. [Concomitant]
  16. ... [Concomitant]

REACTIONS (3)
  - EYE DISORDER [None]
  - SYSTEMIC LUPUS ERYTHEMATOSUS [None]
  - VISUAL ACUITY REDUCED [None]
